FAERS Safety Report 11413267 (Version 1)
Quarter: 2015Q3

REPORT INFORMATION
  Report Type: Spontaneous
  Country: US (occurrence: US)
  Receive Date: 20150821
  Receipt Date: 20150821
  Transmission Date: 20151125
  Serious: No
  Sender: FDA-Public Use
  Company Number: US-ELI_LILLY_AND_COMPANY-US201209006314

PATIENT
  Sex: Female

DRUGS (1)
  1. HUMULIN R [Suspect]
     Active Substance: INSULIN HUMAN
     Indication: DIABETES MELLITUS
     Dosage: 10 U, TID
     Route: 065

REACTIONS (5)
  - Glossodynia [Unknown]
  - Blood glucose decreased [Unknown]
  - Pain in extremity [Unknown]
  - Pain [Unknown]
  - Blood glucose increased [Unknown]
